FAERS Safety Report 10655822 (Version 1)
Quarter: 2014Q4

REPORT INFORMATION
  Report Type: Spontaneous
  Country: US (occurrence: US)
  Receive Date: 20141216
  Receipt Date: 20141216
  Transmission Date: 20150529
  Serious: No
  Sender: FDA-Public Use
  Company Number: US-ABBVIE-13P-163-1180520-00

PATIENT
  Sex: Female
  Weight: 61.29 kg

DRUGS (3)
  1. PREMARIN [Concomitant]
     Active Substance: ESTROGENS, CONJUGATED
     Indication: UNEVALUABLE EVENT
  2. PROMETRIUM [Suspect]
     Active Substance: PROGESTERONE
     Indication: MENOPAUSAL SYMPTOMS
     Dates: end: 2013
  3. PROMETRIUM [Suspect]
     Active Substance: PROGESTERONE
     Dates: start: 2013

REACTIONS (5)
  - Insomnia [Not Recovered/Not Resolved]
  - Night sweats [Not Recovered/Not Resolved]
  - Hyperhidrosis [Recovered/Resolved]
  - Blood pressure increased [Recovered/Resolved]
  - Menopausal symptoms [Unknown]

NARRATIVE: CASE EVENT DATE: 2013
